FAERS Safety Report 6773630-X (Version None)
Quarter: 2010Q2

REPORT INFORMATION
  Report Type: 
  Country: None (occurrence: None)
  Receive Date: 20100614
  Receipt Date: 20100528
  Transmission Date: 20101027
  Serious: Yes (Hospitalization)
  Sender: FDA-Public Use
  Company Number: ACO_01060_2010

PATIENT
  Age: 30 Year
  Sex: Female

DRUGS (1)
  1. TIZANIDINE HYDROCHLORIDE [Suspect]
     Indication: DRUG USE FOR UNKNOWN INDICATION
     Dosage: (92 MG 1X)

REACTIONS (5)
  - ALTERED STATE OF CONSCIOUSNESS [None]
  - BLOOD PRESSURE DECREASED [None]
  - BRADYCARDIA [None]
  - CARBON DIOXIDE INCREASED [None]
  - MULTIPLE DRUG OVERDOSE INTENTIONAL [None]
